FAERS Safety Report 23469317 (Version 1)
Quarter: 2024Q1

REPORT INFORMATION
  Report Type: Report from Study
  Country: US (occurrence: None)
  Receive Date: 20240202
  Receipt Date: 20240202
  Transmission Date: 20240410
  Serious: Yes (Other)
  Sender: FDA-Public Use
  Company Number: 2024A020961

PATIENT
  Sex: Male

DRUGS (1)
  1. LYNPARZA [Suspect]
     Active Substance: OLAPARIB
     Indication: Prostate cancer
     Route: 048
     Dates: start: 20171212

REACTIONS (4)
  - Aortic valve stenosis [Unknown]
  - Full blood count abnormal [Unknown]
  - Dyspnoea [Unknown]
  - Intentional dose omission [Unknown]
